FAERS Safety Report 18880687 (Version 2)
Quarter: 2021Q2

REPORT INFORMATION
  Report Type: Spontaneous
  Country: US (occurrence: US)
  Receive Date: 20210212
  Receipt Date: 20210601
  Transmission Date: 20210717
  Serious: Yes (Other)
  Sender: FDA-Public Use
  Company Number: US-GILEAD-2021-0515537

PATIENT
  Sex: Male
  Weight: 81.63 kg

DRUGS (17)
  1. ALTABAX [Concomitant]
     Active Substance: RETAPAMULIN
  2. CHANTIX [Concomitant]
     Active Substance: VARENICLINE TARTRATE
  3. RAPAFLO [Concomitant]
     Active Substance: SILODOSIN
  4. TAMSULOSIN [Concomitant]
     Active Substance: TAMSULOSIN
  5. HYDROCODONE [Concomitant]
     Active Substance: HYDROCODONE
  6. NAPROXEN. [Concomitant]
     Active Substance: NAPROXEN
  7. CIALIS [Concomitant]
     Active Substance: TADALAFIL
  8. TRUVADA [Suspect]
     Active Substance: EMTRICITABINE\TENOFOVIR DISOPROXIL FUMARATE
     Indication: HIV INFECTION
     Dosage: UNK
     Route: 048
     Dates: start: 201004, end: 201504
  9. TRIUMEQ [Concomitant]
     Active Substance: ABACAVIR SULFATE\DOLUTEGRAVIR SODIUM\LAMIVUDINE
  10. FLUTICASONE. [Concomitant]
     Active Substance: FLUTICASONE
  11. ONDANSETRON [Concomitant]
     Active Substance: ONDANSETRON
  12. KALETRA [Concomitant]
     Active Substance: LOPINAVIR\RITONAVIR
  13. CYCLOBENZAPRINE. [Concomitant]
     Active Substance: CYCLOBENZAPRINE
  14. AZITHROMYCIN ANHYDROUS. [Concomitant]
     Active Substance: AZITHROMYCIN ANHYDROUS
  15. MECLIZINE [Concomitant]
     Active Substance: MECLIZINE HYDROCHLORIDE
  16. SUPRAX [Concomitant]
     Active Substance: CEFIXIME
  17. TRAMADOL. [Concomitant]
     Active Substance: TRAMADOL

REACTIONS (5)
  - Emotional distress [Not Recovered/Not Resolved]
  - Anxiety [Not Recovered/Not Resolved]
  - Anhedonia [Not Recovered/Not Resolved]
  - Pain [Not Recovered/Not Resolved]
  - Osteoporosis [Not Recovered/Not Resolved]

NARRATIVE: CASE EVENT DATE: 2013
